FAERS Safety Report 13824854 (Version 1)
Quarter: 2017Q3

REPORT INFORMATION
  Report Type: Spontaneous
  Country: US (occurrence: US)
  Receive Date: 20170802
  Receipt Date: 20170802
  Transmission Date: 20171127
  Serious: No
  Sender: FDA-Public Use
  Company Number: US-BAYER-2017-136324

PATIENT
  Age: 50 Year
  Sex: Female
  Weight: 121.1 kg

DRUGS (2)
  1. MIRALAX [Suspect]
     Active Substance: POLYETHYLENE GLYCOL 3350
     Dosage: (8.3 OUNCES DOSE)
     Route: 048
     Dates: start: 20170720
  2. MILK OF MAGNESIA ORIGINAL [Suspect]
     Active Substance: MAGNESIUM HYDROXIDE
     Dosage: (2 TABLESPOONS IN THE MORNING  2 AT NIGHT TABLESPOON)
     Route: 048
     Dates: start: 20170719

REACTIONS (2)
  - Off label use [Unknown]
  - Product use in unapproved indication [Unknown]
